FAERS Safety Report 7354349-3 (Version None)
Quarter: 2011Q1

REPORT INFORMATION
  Report Type: 
  Country: None (occurrence: None)
  Receive Date: 20110316
  Receipt Date: 20110302
  Transmission Date: 20110831
  Serious: Yes (Death, Other)
  Sender: FDA-Public Use
  Company Number: TN-JNJFOC-20110304263

PATIENT
  Sex: Female

DRUGS (8)
  1. KETOCONAZOLE [Suspect]
     Indication: TRICHOPHYTOSIS
     Dosage: 200 MG/DAY FOR 21 DAYS
     Route: 065
  2. ANTI TUBERCULOSIS MEDICATION [Suspect]
     Indication: TUBERCULOSIS
     Route: 065
  3. ANTI TUBERCULOSIS MEDICATION [Suspect]
     Route: 065
  4. TERBINAFINE [Suspect]
     Route: 065
  5. GRISEOFULVIN [Suspect]
     Indication: TRICHOPHYTOSIS
     Dosage: FOR THREE MONTHS
     Route: 065
  6. KETOCONAZOLE [Suspect]
     Route: 061
  7. GRISEOFULVIN [Suspect]
     Route: 065
  8. TERBINAFINE [Suspect]
     Indication: TRICHOPHYTOSIS
     Route: 065

REACTIONS (17)
  - DISEASE PROGRESSION [None]
  - NEOPLASM [None]
  - DRUG INEFFECTIVE [None]
  - SEPTIC SHOCK [None]
  - LYMPH NODE TUBERCULOSIS [None]
  - FUNGAL TEST POSITIVE [None]
  - TUBERCULIN TEST POSITIVE [None]
  - ALOPECIA [None]
  - DEPRESSION [None]
  - DERMATOPHYTOSIS [None]
  - SUBCUTANEOUS ABSCESS [None]
  - TRICHOPHYTOSIS [None]
  - IMMUNODEFICIENCY [None]
  - EOSINOPHILIA [None]
  - BLOOD IMMUNOGLOBULIN E INCREASED [None]
  - MULTIPLE-DRUG RESISTANCE [None]
  - INTERFERON GAMMA RECEPTOR DEFICIENCY [None]
